FAERS Safety Report 5112437-6 (Version None)
Quarter: 2006Q3

REPORT INFORMATION
  Report Type: 
  Country: None (occurrence: None)
  Receive Date: 20060922
  Receipt Date: 20060915
  Transmission Date: 20061208
  Serious: Yes (Other)
  Sender: FDA-Public Use
  Company Number: 2006UW18064

PATIENT
  Sex: Female

DRUGS (2)
  1. TOPROL-XL [Suspect]
  2. NEXIUM [Suspect]
     Route: 048

REACTIONS (1)
  - ERYTHEMA MULTIFORME [None]
